FAERS Safety Report 5798008-7 (Version None)
Quarter: 2008Q3

REPORT INFORMATION
  Report Type: 
  Country: None (occurrence: None)
  Receive Date: 20080702
  Receipt Date: 20060912
  Transmission Date: 20090109
  Serious: Yes (Hospitalization)
  Sender: FDA-Public Use
  Company Number: B0438552A

PATIENT
  Age: 62 Year
  Sex: Female

DRUGS (3)
  1. HALOFANTRINE [Suspect]
     Route: 065
  2. OESTROPROGESTATIVE [Concomitant]
  3. ACEBUTOLOL [Concomitant]

REACTIONS (10)
  - CHILLS [None]
  - CHROMATURIA [None]
  - DEHYDRATION [None]
  - HAEMOGLOBINURIA [None]
  - HAEMOLYSIS [None]
  - JAUNDICE [None]
  - NAUSEA [None]
  - PLASMODIUM FALCIPARUM INFECTION [None]
  - PYREXIA [None]
  - RENAL FAILURE [None]
